FAERS Safety Report 4691071-6 (Version None)
Quarter: 2005Q2

REPORT INFORMATION
  Report Type: 
  Country: None (occurrence: None)
  Receive Date: 20050615
  Receipt Date: 20050414
  Transmission Date: 20051028
  Serious: Yes (Other)
  Sender: FDA-Public Use
  Company Number: 200511456JP

PATIENT
  Age: 70 Year
  Sex: Male
  Weight: 60 kg

DRUGS (9)
  1. ARAVA [Suspect]
     Indication: RHEUMATOID ARTHRITIS
     Route: 048
     Dates: start: 20041118, end: 20050328
  2. RHEUMATREX [Concomitant]
     Indication: RHEUMATOID ARTHRITIS
     Dosage: DOSE: 6MG/WEEK
     Route: 048
     Dates: end: 20041117
  3. SOLETON [Concomitant]
     Indication: INFLAMMATION
     Route: 048
     Dates: start: 20050124, end: 20050123
  4. PREDNISOLONE [Concomitant]
     Indication: INFLAMMATION
     Route: 048
     Dates: start: 20050112, end: 20050123
  5. ACTONEL [Concomitant]
     Indication: OSTEOPOROSIS
     Route: 048
     Dates: start: 20050112
  6. HARNAL [Concomitant]
     Indication: BENIGN PROSTATIC HYPERPLASIA
     Route: 048
     Dates: start: 20050303
  7. CHLORMADINONE ACETATE TAB [Concomitant]
     Indication: BENIGN PROSTATIC HYPERPLASIA
     Route: 048
     Dates: start: 20050303
  8. PODONIN S [Concomitant]
     Indication: BENIGN PROSTATIC HYPERPLASIA
     Route: 048
     Dates: start: 20050303
  9. BACTRAMIN [Concomitant]
     Indication: PNEUMOCYSTIS JIROVECI PNEUMONIA
     Dosage: DOSE: 4TABLETS
     Route: 048
     Dates: start: 20050307, end: 20050313

REACTIONS (4)
  - BENIGN PROSTATIC HYPERPLASIA [None]
  - PNEUMOCYSTIS JIROVECI PNEUMONIA [None]
  - PROSTATE CANCER [None]
  - UPPER RESPIRATORY TRACT INFECTION [None]
